FAERS Safety Report 7998280-9 (Version None)
Quarter: 2011Q4

REPORT INFORMATION
  Report Type: 
  Country: None (occurrence: None)
  Receive Date: 20111221
  Receipt Date: 20110613
  Transmission Date: 20120403
  Serious: No
  Sender: FDA-Public Use
  Company Number: US-GLAXOSMITHKLINE-A0931320A

PATIENT
  Age: 73 Year
  Sex: Female

DRUGS (26)
  1. CELEBREX [Concomitant]
  2. TRILIPIX [Concomitant]
  3. XYZAL [Concomitant]
  4. VITAMIN D [Concomitant]
  5. BENICAR HCT [Suspect]
  6. FOLIC ACID [Concomitant]
  7. MAGNESIUM [Concomitant]
  8. SELENIUM [Concomitant]
  9. CO Q 10 [Concomitant]
  10. CHROMIUM PICOLINATE [Concomitant]
  11. VITAMIN B COMPLEX 100 [Concomitant]
  12. VITAMIN C [Concomitant]
  13. CALCIUM [Concomitant]
  14. NEXIUM [Concomitant]
  15. GINKGO BILOBA [Concomitant]
  16. VITAMIN B-12 [Concomitant]
  17. VITAMIN K2 [Concomitant]
  18. LOVAZA [Suspect]
     Indication: BLOOD TRIGLYCERIDES INCREASED
     Dosage: 1CAP PER DAY
     Route: 048
     Dates: start: 20110401
  19. GLUCOSAMINE CHONDROITIN [Concomitant]
  20. BORON [Concomitant]
  21. POTASSIUM [Concomitant]
  22. RUTIN [Concomitant]
  23. ZINC [Concomitant]
  24. TIMOLOL EYE DROPS [Concomitant]
  25. NIACIN [Concomitant]
  26. COPPER [Concomitant]

REACTIONS (2)
  - OEDEMA PERIPHERAL [None]
  - JOINT STIFFNESS [None]
